FAERS Safety Report 11837176 (Version 5)
Quarter: 2016Q1

REPORT INFORMATION
  Report Type: Spontaneous
  Country: US (occurrence: US)
  Receive Date: 20151215
  Receipt Date: 20160226
  Transmission Date: 20160525
  Serious: No
  Sender: FDA-Public Use
  Company Number: US-PFIZER INC-2015394241

PATIENT
  Age: 48 Year
  Sex: Female
  Weight: 74 kg

DRUGS (5)
  1. SUTENT [Suspect]
     Active Substance: SUNITINIB MALATE
     Indication: RENAL CANCER STAGE IV
     Dosage: 50 MG, CYCLIC (28 DAYS ON/14 DAYS OFF)
     Dates: start: 20130613
  2. CLARINEX [Concomitant]
     Active Substance: DESLORATADINE
     Indication: HYPERSENSITIVITY
     Dosage: UNK
  3. REMERON [Concomitant]
     Active Substance: MIRTAZAPINE
     Indication: SLEEP DISORDER
     Dosage: UNK
  4. HYDROCODONE BITARTRATE AND ACETAMINOPHEN [Concomitant]
     Active Substance: ACETAMINOPHEN\HYDROCODONE BITARTRATE
     Dosage: UNK
  5. OMNICEF [Concomitant]
     Active Substance: CEFDINIR
     Dosage: UNK
     Dates: start: 20151112

REACTIONS (12)
  - Memory impairment [Unknown]
  - Feeling abnormal [Unknown]
  - Nausea [Unknown]
  - Withdrawal syndrome [Unknown]
  - Joint injury [Unknown]
  - Bone pain [Unknown]
  - Cognitive disorder [Unknown]
  - Diarrhoea [Unknown]
  - Tendon disorder [Unknown]
  - Malaise [Unknown]
  - Weight decreased [Unknown]
  - Vomiting [Unknown]
